FAERS Safety Report 18058716 (Version 1)
Quarter: 2020Q3

REPORT INFORMATION
  Report Type: Spontaneous
  Country: US (occurrence: US)
  Receive Date: 20200723
  Receipt Date: 20200723
  Transmission Date: 20201103
  Serious: Yes (Other)
  Sender: FDA-Public Use
  Company Number: ALC2020US005700

PATIENT
  Sex: Female

DRUGS (3)
  1. SOLGAR MULTI NUTRIENT [Concomitant]
     Indication: PRODUCT USED FOR UNKNOWN INDICATION
     Dosage: UNK UNK, QD
     Route: 065
  2. ADVAIR HFA [Concomitant]
     Active Substance: FLUTICASONE PROPIONATE\SALMETEROL XINAFOATE
     Indication: PRODUCT USED FOR UNKNOWN INDICATION
     Route: 065
  3. PROPARACAINE HCL [Suspect]
     Active Substance: PROPARACAINE HYDROCHLORIDE
     Indication: PRODUCT USED FOR UNKNOWN INDICATION
     Dosage: 0.5 %, QD
     Route: 047

REACTIONS (4)
  - Eye swelling [Unknown]
  - Vision blurred [Unknown]
  - Chorioretinopathy [Unknown]
  - Dermatitis allergic [Unknown]
